FAERS Safety Report 7942087-5 (Version None)
Quarter: 2011Q4

REPORT INFORMATION
  Report Type: 
  Country: None (occurrence: None)
  Receive Date: 20111122
  Receipt Date: 20111107
  Transmission Date: 20120403
  Serious: Yes (Other)
  Sender: FDA-Public Use
  Company Number: ADR-2011-11279

PATIENT
  Age: 3 Year
  Sex: Female

DRUGS (1)
  1. BACLOFEN [Suspect]
     Indication: CEREBRAL PALSY
     Dosage: 120 MCG,DAILY,INTRATH
     Route: 037

REACTIONS (2)
  - IMPLANT SITE EFFUSION [None]
  - DEVICE BREAKAGE [None]
